FAERS Safety Report 4326354-2 (Version None)
Quarter: 2004Q1

REPORT INFORMATION
  Report Type: 
  Country: None (occurrence: None)
  Receive Date: 20040329
  Receipt Date: 20040329
  Transmission Date: 20041129
  Serious: Yes (Hospitalization)
  Sender: FDA-Public Use
  Company Number: None

PATIENT
  Sex: Female
  Weight: 194.2 kg

DRUGS (12)
  1. VP-16 85 MG/M2 =172 MG + 3 DAYS Q 3 WEEKS [Suspect]
     Indication: SMALL CELL LUNG CANCER STAGE UNSPECIFIED
     Dosage: 172 MG
     Dates: start: 20040310, end: 20040311
  2. CISPLATINUM 80 MG/M2 =162 MG Q 3 WEEKS [Suspect]
     Indication: SMALL CELL LUNG CANCER STAGE UNSPECIFIED
     Dosage: 162 MG
     Dates: start: 20041001
  3. AMBIEN [Concomitant]
  4. LOPRESSOR [Concomitant]
  5. ZOLOFT [Concomitant]
  6. COMBIVENT [Concomitant]
  7. TYLENOL W/ CODEINE NO. 4 [Concomitant]
  8. ESTRADERM [Concomitant]
  9. ZYRTEC [Concomitant]
  10. LANSOPRAZOLE [Concomitant]
  11. ATIVAN [Concomitant]
  12. EMEOIL [Concomitant]

REACTIONS (3)
  - CHOKING SENSATION [None]
  - CYANOSIS [None]
  - DYSPNOEA [None]
